FAERS Safety Report 12942985 (Version 1)
Quarter: 2016Q4

REPORT INFORMATION
  Report Type: Spontaneous
  Country: US (occurrence: US)
  Receive Date: 20161115
  Receipt Date: 20161115
  Transmission Date: 20170207
  Serious: No
  Sender: FDA-Public Use
  Company Number: US-ENDO PHARMACEUTICALS INC.-2016-006384

PATIENT
  Age: 49 Year
  Sex: Male
  Weight: 63.56 kg

DRUGS (1)
  1. XIAFLEX [Suspect]
     Active Substance: COLLAGENASE CLOSTRIDIUM HISTOLYTICUM
     Indication: PEYRONIE^S DISEASE
     Route: 026
     Dates: start: 20161010

REACTIONS (4)
  - Penile contusion [Recovered/Resolved]
  - Blood blister [Not Recovered/Not Resolved]
  - Penile swelling [Recovered/Resolved]
  - Inappropriate schedule of drug administration [Not Recovered/Not Resolved]

NARRATIVE: CASE EVENT DATE: 201610
